FAERS Safety Report 6153299-8 (Version None)
Quarter: 2009Q2

REPORT INFORMATION
  Report Type: 
  Country: None (occurrence: None)
  Receive Date: 20090409
  Receipt Date: 20090326
  Transmission Date: 20091009
  Serious: Yes (Other)
  Sender: FDA-Public Use
  Company Number: 2009S1002075

PATIENT
  Age: 43 Year
  Sex: Male

DRUGS (10)
  1. FLUCONAZOLE [Suspect]
     Indication: ORAL CANDIDIASIS
     Dosage: INTRAVENOUS
     Route: 042
  2. ZOCOR [Suspect]
     Indication: DRUG USE FOR UNKNOWN INDICATION
     Dosage: ORAL
     Route: 048
  3. GLICLAZIDE [Concomitant]
  4. METFORMIN HCL [Concomitant]
  5. ATENOLOL [Concomitant]
  6. RAMIPRIL [Concomitant]
  7. CLOPIDOGREL [Concomitant]
  8. CO-TRIMOXAZOLE [Concomitant]
  9. TRUVADA /01398801/ [Concomitant]
  10. EFAVIRENZ [Concomitant]

REACTIONS (3)
  - DRUG INTERACTION [None]
  - RENAL FAILURE ACUTE [None]
  - RHABDOMYOLYSIS [None]
